FAERS Safety Report 4472950-1 (Version None)
Quarter: 2004Q4

REPORT INFORMATION
  Report Type: 
  Country: None (occurrence: None)
  Receive Date: 20041013
  Receipt Date: 20041005
  Transmission Date: 20050328
  Serious: Yes (Hospitalization)
  Sender: FDA-Public Use
  Company Number: US-ABBOTT-04P-163-0276166-00

PATIENT
  Sex: Female
  Weight: 52.21 kg

DRUGS (9)
  1. HUMIRA [Suspect]
     Indication: RHEUMATOID ARTHRITIS
     Route: 058
     Dates: start: 20040201, end: 20040823
  2. HUMIRA [Suspect]
     Route: 058
     Dates: start: 20040927
  3. HYDROXYCHLOROQUINE PHOSPHATE [Concomitant]
     Indication: RHEUMATOID ARTHRITIS
     Route: 048
  4. PREDNISONE [Concomitant]
     Indication: RHEUMATOID ARTHRITIS
     Route: 048
  5. RANITIDINE HYDROCHLORIDE [Concomitant]
     Indication: STOMACH DISCOMFORT
     Route: 048
  6. LEVOTHYROXINE SODIUM [Concomitant]
     Indication: HYPOTHYROIDISM
     Route: 048
  7. VICODIN [Concomitant]
     Indication: PAIN
     Route: 048
  8. CYANOCOBALAMIN [Concomitant]
     Indication: ANAEMIA
     Route: 030
  9. FERROUS SULFATE TAB [Concomitant]
     Indication: ANAEMIA
     Route: 048

REACTIONS (3)
  - FALL [None]
  - PELVIC FRACTURE [None]
  - RIB FRACTURE [None]
